FAERS Safety Report 6543891-0 (Version None)
Quarter: 2010Q1

REPORT INFORMATION
  Report Type: 
  Country: None (occurrence: None)
  Receive Date: 20100120
  Receipt Date: 20100112
  Transmission Date: 20100710
  Serious: Yes (Hospitalization, Other)
  Sender: FDA-Public Use
  Company Number: US-NOVOPROD-303039

PATIENT
  Sex: Male
  Weight: 97.506 kg

DRUGS (5)
  1. NOVOLIN 70/30 [Suspect]
     Indication: TYPE 2 DIABETES MELLITUS
     Dosage: UNKNOWN
     Route: 058
     Dates: end: 20091223
  2. NORVASC [Concomitant]
     Indication: BLOOD PRESSURE INCREASED
     Dosage: 10 MG, QD
  3. ASPIRIN [Concomitant]
     Indication: PLATELET DISORDER
  4. BISOPROLOL FUMARATE [Concomitant]
     Indication: BLOOD PRESSURE INCREASED
  5. TRI-AM [Concomitant]
     Indication: BLOOD PRESSURE INCREASED

REACTIONS (3)
  - BLOOD GLUCOSE INCREASED [None]
  - ISCHAEMIC STROKE [None]
  - SWOLLEN TONGUE [None]
